FAERS Safety Report 6478034-5 (Version None)
Quarter: 2009Q4

REPORT INFORMATION
  Report Type: 
  Country: None (occurrence: None)
  Receive Date: 20091207
  Receipt Date: 20091127
  Transmission Date: 20100525
  Serious: Yes (Other)
  Sender: FDA-Public Use
  Company Number: B0608846A

PATIENT
  Age: 33 Year
  Sex: Male
  Weight: 89.5 kg

DRUGS (1)
  1. NICORETTE [Suspect]
     Indication: SMOKING CESSATION THERAPY
     Dates: start: 20091023, end: 20091031

REACTIONS (1)
  - CHEST PAIN [None]
